FAERS Safety Report 5901924-6 (Version None)
Quarter: 2008Q3

REPORT INFORMATION
  Report Type: 
  Country: None (occurrence: None)
  Receive Date: 20080929
  Receipt Date: 20080303
  Transmission Date: 20090109
  Serious: No
  Sender: FDA-Public Use
  Company Number: US-BRISTOL-MYERS SQUIBB COMPANY-14100648

PATIENT
  Age: 30 Year
  Sex: Female

DRUGS (7)
  1. BUSPAR [Suspect]
     Indication: HEADACHE
     Dates: start: 20071101, end: 20071101
  2. LEXAPRO [Suspect]
     Indication: HEADACHE
     Dosage: 10MG TAKEN FROM 01SEP07 TO OCT07 AND FROM OCT07 TO CONT
     Route: 048
     Dates: start: 20071001, end: 20071001
  3. LYRICA [Concomitant]
  4. KEPPRA [Concomitant]
  5. WELLBUTRIN [Concomitant]
  6. IMITREX [Concomitant]
  7. KERLONE [Concomitant]

REACTIONS (1)
  - TREMOR [None]
